FAERS Safety Report 4314181-1 (Version None)
Quarter: 2004Q1

REPORT INFORMATION
  Report Type: 
  Country: None (occurrence: None)
  Receive Date: 20040302
  Receipt Date: 20040122
  Transmission Date: 20041129
  Serious: No
  Sender: FDA-Public Use
  Company Number: 701547

PATIENT
  Age: 55 Year
  Sex: Male

DRUGS (1)
  1. AMEVIVE [Suspect]
     Indication: PSORIASIS
     Dates: start: 20030101

REACTIONS (1)
  - DRUG INEFFECTIVE [None]
